FAERS Safety Report 8557779-7 (Version None)
Quarter: 2012Q3

REPORT INFORMATION
  Report Type: 
  Country: None (occurrence: None)
  Receive Date: 20120801
  Receipt Date: 20120112
  Transmission Date: 20120928
  Serious: Yes (Other)
  Sender: FDA-Public Use
  Company Number: US-ROCHE-1092330

PATIENT
  Sex: Male
  Weight: 89 kg

DRUGS (4)
  1. XOLAIR [Suspect]
     Route: 065
     Dates: start: 20071022
  2. XOLAIR [Suspect]
     Route: 065
     Dates: start: 20071217
  3. XOLAIR [Suspect]
     Route: 065
     Dates: start: 20071119
  4. XOLAIR [Suspect]
     Indication: ASTHMA
     Route: 065
     Dates: start: 20070924

REACTIONS (6)
  - SINUSITIS [None]
  - WHEEZING [None]
  - DYSPNOEA EXERTIONAL [None]
  - DYSPNOEA PAROXYSMAL NOCTURNAL [None]
  - UNEVALUABLE EVENT [None]
  - RHINORRHOEA [None]
